FAERS Safety Report 25750958 (Version 1)
Quarter: 2025Q3

REPORT INFORMATION
  Report Type: Spontaneous
  Country: US (occurrence: US)
  Receive Date: 20250902
  Receipt Date: 20250902
  Transmission Date: 20251020
  Serious: Yes (Hospitalization, Other)
  Sender: HIKMA
  Company Number: US-HIKMA PHARMACEUTICALS USA INC.-US-H14001-25-09790

PATIENT

DRUGS (7)
  1. METHOTREXATE [Suspect]
     Active Substance: METHOTREXATE
     Indication: Rheumatoid arthritis
     Dosage: 20 MG, CYCLIC, EVERY 7 DAYS
     Route: 048
     Dates: start: 20220101
  2. PREDNISONE [Suspect]
     Active Substance: PREDNISONE
     Indication: Prostate cancer
     Dosage: 5 MILLIGRAM, QD
     Route: 048
     Dates: start: 20250301, end: 20250801
  3. TALAZOPARIB [Suspect]
     Active Substance: TALAZOPARIB
     Indication: Prostate cancer metastatic
     Dosage: 1 MILLIGRAM, QD
     Route: 048
     Dates: start: 20250312
  4. TALAZOPARIB [Suspect]
     Active Substance: TALAZOPARIB
     Dosage: 1 DOSAGE FORM, QD
     Route: 048
     Dates: end: 20250729
  5. ZYTIGA [Suspect]
     Active Substance: ABIRATERONE ACETATE
     Indication: Prostate cancer
     Dosage: 1000 MILLIGRAM, QD
     Route: 048
     Dates: start: 20250301, end: 20250729
  6. CALCIUM [Concomitant]
     Active Substance: CALCIUM
     Indication: Hypocalcaemia
     Route: 048
     Dates: start: 20250312
  7. FLOMAX [Concomitant]
     Active Substance: TAMSULOSIN HYDROCHLORIDE
     Indication: Urinary hesitation
     Route: 048
     Dates: start: 20170101

REACTIONS (3)
  - Anaemia [Recovered/Resolved]
  - Asthenia [Unknown]
  - Oedema peripheral [Unknown]

NARRATIVE: CASE EVENT DATE: 20250728
